FAERS Safety Report 10089779 (Version 2)
Quarter: 2014Q2

REPORT INFORMATION
  Report Type: Spontaneous
  Country: IE (occurrence: IE)
  Receive Date: 20140421
  Receipt Date: 20140421
  Transmission Date: 20141212
  Serious: Yes (Other)
  Sender: FDA-Public Use
  Company Number: IE-PFIZER INC-2014109203

PATIENT
  Age: 35 Year
  Sex: Female

DRUGS (5)
  1. SOLU-MEDRONE [Suspect]
     Indication: MULTIPLE SCLEROSIS
     Dosage: 500 MG, UNK
     Route: 042
     Dates: start: 20140402
  2. FAMVIR [Concomitant]
     Indication: ANTIVIRAL TREATMENT
     Dosage: 750 MG, UNK
     Route: 048
     Dates: start: 20140402
  3. FINGOLIMOD [Concomitant]
     Indication: MULTIPLE SCLEROSIS
     Dosage: 0.5 MG, UNK
     Route: 048
     Dates: start: 20140401
  4. PIRITON [Concomitant]
     Indication: PREMEDICATION
     Dosage: UNK
     Dates: start: 20140402
  5. HYDROCORTISONE [Concomitant]
     Indication: PREMEDICATION
     Dosage: UNK
     Dates: start: 20140402

REACTIONS (7)
  - Blood pressure decreased [Recovered/Resolved]
  - Cold sweat [Recovered/Resolved]
  - Heart rate increased [Recovered/Resolved]
  - Dizziness [Recovered/Resolved]
  - Feeling abnormal [Recovered/Resolved]
  - Hypersensitivity [Recovered/Resolved]
  - Adverse drug reaction [Recovered/Resolved]
